FAERS Safety Report 23295670 (Version 3)
Quarter: 2024Q4

REPORT INFORMATION
  Report Type: Report from Study
  Country: US (occurrence: US)
  Receive Date: 20231214
  Receipt Date: 20241024
  Transmission Date: 20250115
  Serious: Yes (Hospitalization, Other)
  Sender: UCB
  Company Number: US-UCBSA-2023050641

PATIENT
  Age: 19 Year
  Sex: Male

DRUGS (2)
  1. MIDAZOLAM [Suspect]
     Active Substance: MIDAZOLAM
     Indication: Seizure
     Dosage: 5 MILLIGRAM, AS NEEDED (PRN)
  2. MIDAZOLAM [Suspect]
     Active Substance: MIDAZOLAM
     Indication: Epilepsy

REACTIONS (5)
  - Seizure [Not Recovered/Not Resolved]
  - Inability to afford medication [Unknown]
  - Malaise [Unknown]
  - Hypersensitivity [Unknown]
  - Insurance issue [Unknown]

NARRATIVE: CASE EVENT DATE: 20231212
